FAERS Safety Report 4318283-5 (Version None)
Quarter: 2004Q1

REPORT INFORMATION
  Report Type: 
  Country: None (occurrence: None)
  Receive Date: 20040315
  Receipt Date: 20040308
  Transmission Date: 20041129
  Serious: Yes (Hospitalization)
  Sender: FDA-Public Use
  Company Number: 230646K04USA

PATIENT
  Age: 28 Year
  Sex: Male

DRUGS (1)
  1. REBIF [Suspect]
     Indication: MULTIPLE SCLEROSIS
     Dosage: 44 MCG, 3 IN 1 WEEKS,
     Dates: start: 20030519

REACTIONS (5)
  - INJECTION SITE ABSCESS [None]
  - INJECTION SITE CELLULITIS [None]
  - MEMORY IMPAIRMENT [None]
  - POOR VENOUS ACCESS [None]
  - VEIN DISORDER [None]
